FAERS Safety Report 14705601 (Version 1)
Quarter: 2018Q2

REPORT INFORMATION
  Report Type: Spontaneous
  Country: JP (occurrence: JP)
  Receive Date: 20180402
  Receipt Date: 20180402
  Transmission Date: 20180711
  Serious: Yes (Death, Disabling, Other)
  Sender: FDA-Public Use
  Company Number: JP-BAYER-2017-191972

PATIENT
  Age: 63 Year
  Sex: Male
  Weight: 59 kg

DRUGS (8)
  1. BAYASPIRIN 100 MG [Suspect]
     Active Substance: ASPIRIN
     Indication: THROMBOSIS PROPHYLAXIS
     Dosage: 100 MG, QD
     Route: 048
     Dates: end: 20170729
  2. BISOPROLOL FUMARATE. [Concomitant]
     Active Substance: BISOPROLOL FUMARATE
     Dosage: DAILY DOSE 2.5 MG
     Route: 048
  3. CLOPIDOGREL [Interacting]
     Active Substance: CLOPIDOGREL BISULFATE
     Dosage: DAILY DOSE 75 MG
     Route: 048
     Dates: end: 20170729
  4. WARFARIN [Interacting]
     Active Substance: WARFARIN
     Dosage: DAILY DOSE 3 MG
     Route: 048
     Dates: end: 20170729
  5. AMLODIPINE [Concomitant]
     Active Substance: AMLODIPINE BESYLATE
     Dosage: DAILY DOSE 10 MG
     Route: 048
  6. LANSOPRAZOLE. [Concomitant]
     Active Substance: LANSOPRAZOLE
     Dosage: DAILY DOSE 15 MG
     Route: 048
  7. CRESTOR [Concomitant]
     Active Substance: ROSUVASTATIN CALCIUM
     Dosage: DAILY DOSE 5 MG
     Route: 048
  8. ZETIA [Concomitant]
     Active Substance: EZETIMIBE
     Dosage: DAILY DOSE 10 MG
     Route: 048

REACTIONS (10)
  - Cerebral infarction [Fatal]
  - Labelled drug-drug interaction medication error [None]
  - Mydriasis [Fatal]
  - Hemiplegia [Fatal]
  - Cerebral haemorrhage [Fatal]
  - Respiratory arrest [Fatal]
  - Thalamus haemorrhage [None]
  - Aphasia [Fatal]
  - Drug administration error [None]
  - Depressed level of consciousness [Fatal]

NARRATIVE: CASE EVENT DATE: 20170729
